FAERS Safety Report 20115249 (Version 1)
Quarter: 2021Q4

REPORT INFORMATION
  Report Type: Spontaneous
  Country: ES (occurrence: ES)
  Receive Date: 20211125
  Receipt Date: 20211125
  Transmission Date: 20220303
  Serious: Yes (Other)
  Sender: FDA-Public Use
  Company Number: ES-SUN PHARMACEUTICAL INDUSTRIES LTD-2021RR-318618

PATIENT
  Age: 47 Year
  Sex: Female

DRUGS (8)
  1. CANDESARTAN [Suspect]
     Active Substance: CANDESARTAN
     Indication: Migraine
     Dosage: UNK
     Route: 065
  2. TOPIRAMATE [Suspect]
     Active Substance: TOPIRAMATE
     Indication: Migraine
     Dosage: UNK
     Route: 065
  3. AMITRIPTYLINE [Suspect]
     Active Substance: AMITRIPTYLINE
     Indication: Migraine
     Dosage: UNK
     Route: 065
  4. CLOBAZAM [Suspect]
     Active Substance: CLOBAZAM
     Indication: Restless legs syndrome
     Dosage: UNK
     Route: 065
  5. ROPINIROLE [Suspect]
     Active Substance: ROPINIROLE
     Indication: Restless legs syndrome
     Dosage: UNK
     Route: 065
  6. FLUNARIZINE [Concomitant]
     Active Substance: FLUNARIZINE
     Indication: Migraine
     Dosage: UNK
     Route: 065
  7. ERENUMAB [Concomitant]
     Active Substance: ERENUMAB
     Indication: Migraine
     Dosage: 140 MILLIGRAM, UNK
     Route: 065
     Dates: start: 202002
  8. ERENUMAB [Concomitant]
     Active Substance: ERENUMAB
     Dosage: 70 MILLIGRAM, UNK
     Route: 065

REACTIONS (4)
  - Drug ineffective [Unknown]
  - Decreased appetite [Unknown]
  - Weight decreased [Unknown]
  - Nausea [Unknown]
